FAERS Safety Report 24228790 (Version 1)
Quarter: 2024Q3

REPORT INFORMATION
  Report Type: Spontaneous
  Country: RU (occurrence: RU)
  Receive Date: 20240820
  Receipt Date: 20240820
  Transmission Date: 20241017
  Serious: Yes (Life-Threatening)
  Sender: SANOFI AVENTIS
  Company Number: RU-SA-SAC20240817000377

PATIENT
  Age: 8 Year
  Sex: Male
  Weight: 12 kg

DRUGS (1)
  1. DUPIXENT [Suspect]
     Active Substance: DUPILUMAB
     Indication: Connective tissue dysplasia
     Dosage: 300 MG, QOW
     Route: 058
     Dates: start: 20240808, end: 20240812

REACTIONS (2)
  - Drug eruption [Recovering/Resolving]
  - Off label use [Unknown]

NARRATIVE: CASE EVENT DATE: 20240808
